FAERS Safety Report 8739414 (Version 6)
Quarter: 2013Q3

REPORT INFORMATION
  Report Type: Report from Study
  Country: AR (occurrence: AR)
  Receive Date: 20120828
  Receipt Date: 20130715
  Transmission Date: 20140515
  Serious: Yes (Life-Threatening, Hospitalization, Other)
  Sender: FDA-Public Use
  Company Number: AR-BRISTOL-MYERS SQUIBB COMPANY-16871881

PATIENT
  Age: 53 Year
  Sex: Male

DRUGS (3)
  1. SAXAGLIPTIN [Suspect]
     Indication: TYPE 2 DIABETES MELLITUS
     Dosage: INTERRUPTED ON 5JUL11 RESUMED ON 3AUG11, INTERRUPTED ON 10JUN12 RESUMED ON 27JUN12
     Dates: start: 20110318
  2. METFORMIN HCL [Suspect]
     Indication: TYPE 2 DIABETES MELLITUS
  3. ASPIRIN [Concomitant]
     Dosage: 1 DF= ={100MG

REACTIONS (1)
  - Renal failure acute [Recovered/Resolved]
